FAERS Safety Report 5593597-X (Version None)
Quarter: 2008Q1

REPORT INFORMATION
  Report Type: 
  Country: None (occurrence: None)
  Receive Date: 20080116
  Receipt Date: 20080111
  Transmission Date: 20080703
  Serious: Yes (Death, Life-Threatening)
  Sender: FDA-Public Use
  Company Number: DE-BRISTOL-MYERS SQUIBB COMPANY-14038343

PATIENT
  Age: 60 Year
  Sex: Female

DRUGS (6)
  1. CARBOPLATIN [Suspect]
     Indication: OVARIAN CANCER
     Dosage: 477 MG =AUC 5 . 1ST CYCLE ON 01-NOV-2007
     Route: 042
     Dates: start: 20071122, end: 20071122
  2. PACLITAXEL [Suspect]
     Indication: OVARIAN CANCER
     Dosage: 318 MG, 1ST CYCLE ON 01-NOV-2007
     Route: 042
     Dates: start: 20071122, end: 20071122
  3. PAZOPANIB [Suspect]
     Indication: OVARIAN CANCER
     Dosage: GIVEN AS TABLET.
     Route: 048
     Dates: start: 20071101, end: 20071206
  4. RAMIPRIL [Concomitant]
     Dates: start: 20071205
  5. LEVOTHYROXINE SODIUM [Concomitant]
     Dates: start: 19920101
  6. ZOPICLONE [Concomitant]
     Dates: start: 20071205

REACTIONS (1)
  - ILEAL PERFORATION [None]
